FAERS Safety Report 5680033-8 (Version None)
Quarter: 2008Q1

REPORT INFORMATION
  Report Type: 
  Country: None (occurrence: None)
  Receive Date: 20080312
  Receipt Date: 20080312
  Transmission Date: 20080703
  Serious: Yes (Hospitalization)
  Sender: FDA-Public Use
  Company Number: None

PATIENT
  Age: 53 Year
  Sex: Female
  Weight: 74.3899 kg

DRUGS (1)
  1. CONTROLRX DENTIFRICE   5000 PPM PRESCRIPTION   OMNI PHARMACEUTICALS, [Suspect]
     Indication: DENTAL DISORDER PROPHYLAXIS
     Dosage: APPLY PEA-SIZED AMOUNT AS NEEDED PO (USED ONLY ONCE)
     Route: 048
     Dates: start: 20080219, end: 20080219

REACTIONS (22)
  - ANXIETY [None]
  - ATRIAL FIBRILLATION [None]
  - CEREBROVASCULAR ACCIDENT [None]
  - DISCOMFORT [None]
  - DIZZINESS [None]
  - DYSPHONIA [None]
  - EYE ROLLING [None]
  - EYE SWELLING [None]
  - FLUOROSIS [None]
  - LIP SWELLING [None]
  - LOSS OF CONSCIOUSNESS [None]
  - MEDICATION ERROR [None]
  - MIDDLE INSOMNIA [None]
  - MYDRIASIS [None]
  - MYOCARDIAL INFARCTION [None]
  - OEDEMA MOUTH [None]
  - PAIN IN JAW [None]
  - PHARMACEUTICAL PRODUCT COMPLAINT [None]
  - PHARYNGOLARYNGEAL PAIN [None]
  - RETCHING [None]
  - THROAT IRRITATION [None]
  - URTICARIA [None]
